FAERS Safety Report 13342607 (Version 1)
Quarter: 2017Q1

REPORT INFORMATION
  Report Type: Spontaneous
  Country: US (occurrence: US)
  Receive Date: 20170316
  Receipt Date: 20170316
  Transmission Date: 20170428
  Serious: Yes (Other)
  Sender: FDA-Public Use
  Company Number: US-PFIZER INC-2017107442

PATIENT
  Sex: Female

DRUGS (1)
  1. XELJANZ [Suspect]
     Active Substance: TOFACITINIB CITRATE
     Dosage: 5 MG, UNK

REACTIONS (32)
  - Fatigue [Unknown]
  - Arthralgia [Unknown]
  - Paraesthesia [Unknown]
  - Tinnitus [Unknown]
  - Nausea [Unknown]
  - Oropharyngeal pain [Unknown]
  - Neck pain [Unknown]
  - Headache [Unknown]
  - Ear pain [Unknown]
  - Temperature intolerance [Unknown]
  - Dry mouth [Unknown]
  - Joint swelling [Unknown]
  - Hand deformity [Unknown]
  - Decreased appetite [Unknown]
  - Dysphagia [Unknown]
  - Dry skin [Unknown]
  - Back pain [Not Recovered/Not Resolved]
  - Dyspepsia [Unknown]
  - Anxiety [Unknown]
  - Cough [Unknown]
  - Flank pain [Not Recovered/Not Resolved]
  - Abdominal pain [Unknown]
  - Depression [Unknown]
  - Dyspnoea [Unknown]
  - Nephrolithiasis [Not Recovered/Not Resolved]
  - Night sweats [Unknown]
  - Muscle spasms [Unknown]
  - Muscular weakness [Unknown]
  - Vomiting [Unknown]
  - Hypoaesthesia [Unknown]
  - Nasal congestion [Unknown]
  - Sinus disorder [Unknown]
